FAERS Safety Report 5536653-4 (Version None)
Quarter: 2007Q4

REPORT INFORMATION
  Report Type: 
  Country: None (occurrence: None)
  Receive Date: 20071204
  Receipt Date: 20071119
  Transmission Date: 20080405
  Serious: Yes (Other)
  Sender: FDA-Public Use
  Company Number: 2007S1012133

PATIENT
  Age: 61 Year
  Sex: Female
  Weight: 79.38 kg

DRUGS (1)
  1. OMPRAZOLE (OMEPRAZOLE) [Suspect]
     Indication: DYSPEPSIA
     Dosage: 20 MG; ORAL
     Route: 048
     Dates: start: 20070720

REACTIONS (3)
  - DYSPEPSIA [None]
  - FLATULENCE [None]
  - PHARMACEUTICAL PRODUCT COMPLAINT [None]
